FAERS Safety Report 11338085 (Version 1)
Quarter: 2015Q3

REPORT INFORMATION
  Report Type: Spontaneous
  Country: US (occurrence: US)
  Receive Date: 20150803
  Receipt Date: 20150803
  Transmission Date: 20151125
  Serious: No
  Sender: FDA-Public Use
  Company Number: US-ELI_LILLY_AND_COMPANY-US201006005000

PATIENT
  Sex: Male

DRUGS (6)
  1. CELEXA [Concomitant]
     Active Substance: CITALOPRAM HYDROBROMIDE
  2. ZYPREXA [Suspect]
     Active Substance: OLANZAPINE
     Dosage: UNK, UNKNOWN
  3. CITALOPRAM [Concomitant]
     Active Substance: CITALOPRAM HYDROBROMIDE
  4. ZYPREXA [Suspect]
     Active Substance: OLANZAPINE
     Indication: BIPOLAR DISORDER
     Dosage: 5 MG, UNK
     Dates: start: 20100615
  5. ALCOHOL. [Concomitant]
     Active Substance: ALCOHOL
  6. DOXAZOSIN [Concomitant]
     Active Substance: DOXAZOSIN\DOXAZOSIN MESYLATE

REACTIONS (12)
  - Adverse event [Unknown]
  - Irritability [Unknown]
  - Speech disorder [Unknown]
  - Sedation [Unknown]
  - Blood pressure abnormal [Unknown]
  - Fear [Unknown]
  - General physical health deterioration [Unknown]
  - Logorrhoea [Unknown]
  - Hypersomnia [Unknown]
  - Dyspnoea [Unknown]
  - Somnolence [Unknown]
  - Wrong technique in product usage process [Unknown]
